FAERS Safety Report 6464005-1 (Version None)
Quarter: 2009Q4

REPORT INFORMATION
  Report Type: 
  Country: None (occurrence: None)
  Receive Date: 20091130
  Receipt Date: 20091130
  Transmission Date: 20100525
  Serious: No
  Sender: FDA-Public Use
  Company Number: None

PATIENT

DRUGS (1)
  1. SYNTHROID [Suspect]

REACTIONS (6)
  - ABDOMINAL DISTENSION [None]
  - CONSTIPATION [None]
  - DYSPNOEA [None]
  - OEDEMA MOUTH [None]
  - PHARYNGEAL OEDEMA [None]
  - SWELLING FACE [None]
